FAERS Safety Report 6396728-7 (Version None)
Quarter: 2009Q4

REPORT INFORMATION
  Report Type: 
  Country: None (occurrence: None)
  Receive Date: 20091008
  Receipt Date: 20091008
  Transmission Date: 20100525
  Serious: Yes (Hospitalization)
  Sender: FDA-Public Use
  Company Number: None

PATIENT
  Sex: Female

DRUGS (2)
  1. MS CONTIN [Suspect]
     Indication: PAIN
     Dosage: 15MG Q12H PO
     Route: 048
     Dates: start: 20090302, end: 20090310
  2. MORPHINE [Suspect]
     Dosage: 2-5MG Q1H PRN IV BOLUS
     Route: 040

REACTIONS (1)
  - URINARY RETENTION [None]
